FAERS Safety Report 6155208-4 (Version None)
Quarter: 2009Q2

REPORT INFORMATION
  Report Type: 
  Country: None (occurrence: None)
  Receive Date: 20090415
  Receipt Date: 20070919
  Transmission Date: 20091009
  Serious: Yes (Hospitalization)
  Sender: FDA-Public Use
  Company Number: US-ASTRAZENECA-2006UW21049

PATIENT
  Age: 16179 Day
  Sex: Male
  Weight: 97.1 kg

DRUGS (19)
  1. SEROQUEL [Suspect]
     Dosage: 200 MG - 400 MG
     Route: 048
     Dates: start: 20020522
  2. LIPITOR [Concomitant]
  3. RANITIDINE [Concomitant]
  4. BENZTROPINE MESYLATE [Concomitant]
  5. REMERON [Concomitant]
  6. HYDROCHLOROT [Concomitant]
  7. FLONASE [Concomitant]
  8. CLARITIN [Concomitant]
  9. ASPIRIN [Concomitant]
  10. CAPOTEN [Concomitant]
  11. LOPID [Concomitant]
  12. ZANTAC [Concomitant]
  13. PEPCID [Concomitant]
  14. GLUCOVANCE [Concomitant]
  15. AMARYL [Concomitant]
  16. ATENOLOL [Concomitant]
  17. PREVACID [Concomitant]
  18. HALOPERIDOL [Concomitant]
  19. GLIPIZIDE [Concomitant]

REACTIONS (8)
  - DIZZINESS [None]
  - DYSARTHRIA [None]
  - METABOLIC SYNDROME [None]
  - MUSCULOSKELETAL CHEST PAIN [None]
  - POLYDIPSIA [None]
  - POLYURIA [None]
  - TYPE 2 DIABETES MELLITUS [None]
  - WEIGHT DECREASED [None]
